FAERS Safety Report 9161098 (Version 2)
Quarter: 2013Q1

REPORT INFORMATION
  Report Type: Other
  Country: DK (occurrence: TR)
  Receive Date: 20130313
  Receipt Date: 20130315
  Transmission Date: 20140127
  Serious: Yes (Other)
  Sender: FDA-Public Use
  Company Number: TR-FRI-1000043298

PATIENT
  Age: 43 Year
  Sex: Female

DRUGS (3)
  1. ESCITALOPRAM [Suspect]
     Dosage: 20 MG
  2. ISONIAZID [Suspect]
     Indication: TUBERCULIN TEST POSITIVE
  3. CORTICOSTEROIDS [Concomitant]
     Dates: start: 2011

REACTIONS (2)
  - Serotonin syndrome [Recovered/Resolved]
  - Drug interaction [Recovered/Resolved]
